FAERS Safety Report 9217522 (Version 1)
Quarter: 2013Q2

REPORT INFORMATION
  Report Type: Spontaneous
  Country: GR (occurrence: GR)
  Receive Date: 20130408
  Receipt Date: 20130408
  Transmission Date: 20140414
  Serious: Yes (Hospitalization)
  Sender: FDA-Public Use
  Company Number: GR-ROCHE-1211197

PATIENT
  Sex: Female

DRUGS (5)
  1. PEGASYS [Suspect]
     Indication: HEPATITIS C
     Route: 065
  2. PEGASYS [Suspect]
     Route: 065
  3. COPEGUS [Suspect]
     Indication: HEPATITIS C
     Route: 065
  4. COPEGUS [Suspect]
     Dosage: IN SPLIT DOSES
     Route: 065
  5. INCIVO [Suspect]
     Indication: HEPATITIS C
     Route: 065

REACTIONS (2)
  - Menorrhagia [Recovering/Resolving]
  - Haematocrit decreased [Recovering/Resolving]
